FAERS Safety Report 9862845 (Version 1)
Quarter: 2014Q1

REPORT INFORMATION
  Report Type: Report from Study
  Country: ES (occurrence: ES)
  Receive Date: 20140203
  Receipt Date: 20140203
  Transmission Date: 20141002
  Serious: Yes (Hospitalization)
  Sender: FDA-Public Use
  Company Number: PHHO2014ES001411

PATIENT
  Sex: 0

DRUGS (8)
  1. FUROSEMIDE [Suspect]
     Indication: CARDIAC FAILURE
     Dosage: 20 MG, 8H
     Route: 042
     Dates: start: 20140120, end: 20140121
  2. FUROSEMIDE [Suspect]
     Dosage: 40 MG, ^IO^, 8H
     Dates: start: 20140121, end: 20140123
  3. FUROSEMIDE [Suspect]
     Dosage: 40 MG, ^VO^ 24 H
     Dates: start: 20140123, end: 20140123
  4. BLINDED NO TREATMENT RECEIVED [Suspect]
     Indication: CARDIAC FAILURE ACUTE
     Dosage: DOUBLE BLIND
     Route: 041
     Dates: start: 20140119
  5. BLINDED PLACEBO [Suspect]
     Indication: CARDIAC FAILURE ACUTE
     Dosage: DOUBLE BLIND
     Route: 041
     Dates: start: 20140119
  6. BLINDED RLX030 [Suspect]
     Indication: CARDIAC FAILURE ACUTE
     Dosage: DOUBLE BLIND
     Route: 041
     Dates: start: 20140119
  7. RAMIPRIL [Concomitant]
     Indication: CARDIAC FAILURE
     Dosage: 25 MG, ^V.O^, 24 H
     Dates: start: 20140121
  8. CARVEDILOL [Concomitant]
     Indication: CARDIAC FAILURE
     Dosage: 3.125 MG, ^VO^, 12H
     Dates: start: 20140121

REACTIONS (1)
  - Renal failure [Recovering/Resolving]
